FAERS Safety Report 4422215-9 (Version None)
Quarter: 2004Q3

REPORT INFORMATION
  Report Type: 
  Country: None (occurrence: None)
  Receive Date: 20040810
  Receipt Date: 20040729
  Transmission Date: 20050211
  Serious: Yes (Disabling)
  Sender: FDA-Public Use
  Company Number: JP-JNJFOC-20040707811

PATIENT
  Age: 75 Year
  Sex: Male

DRUGS (2)
  1. OFLOXACIN [Suspect]
     Route: 049
     Dates: start: 20040201, end: 20040215
  2. ANTICHOLESTEROL AGENT [Suspect]

REACTIONS (2)
  - DIFFICULTY IN WALKING [None]
  - MUSCLE STRAIN [None]
